FAERS Safety Report 23586340 (Version 1)
Quarter: 2024Q1

REPORT INFORMATION
  Report Type: Spontaneous
  Country: DK (occurrence: DK)
  Receive Date: 20240301
  Receipt Date: 20240301
  Transmission Date: 20240409
  Serious: Yes (Death)
  Sender: FDA-Public Use
  Company Number: DK-SANDOZ-SDZ2024DK021796

PATIENT
  Age: 3 Decade
  Sex: Female

DRUGS (3)
  1. LEVETIRACETAM [Suspect]
     Active Substance: LEVETIRACETAM
     Indication: Generalised tonic-clonic seizure
     Dosage: 5ML LEV WITH A CONCENTRATION OF 100MG/ML ADMINISTERED BY HAND OVER CA. 5MIN
     Route: 058
  2. METHYLPREDNISOLONE [Concomitant]
     Active Substance: METHYLPREDNISOLONE
     Indication: Product used for unknown indication
     Dosage: HIGH-DOSE VIA A SEPARATE CANNULA.
     Route: 058
  3. MIDAZOLAM [Concomitant]
     Active Substance: MIDAZOLAM
     Indication: Product used for unknown indication
     Dosage: VIA A SEPARATE CANNULA, HIGH DOSE
     Route: 065

REACTIONS (1)
  - Product preparation issue [Fatal]
